FAERS Safety Report 11995736 (Version 3)
Quarter: 2016Q2

REPORT INFORMATION
  Report Type: Spontaneous
  Country: US (occurrence: US)
  Receive Date: 20160203
  Receipt Date: 20160426
  Transmission Date: 20160815
  Serious: Yes (Death, Hospitalization)
  Sender: FDA-Public Use
  Company Number: US-PFIZER INC-2016042402

PATIENT
  Age: 69 Year
  Sex: Male
  Weight: 81.65 kg

DRUGS (27)
  1. EMCYT [Suspect]
     Active Substance: ESTRAMUSTINE PHOSPHATE SODIUM
     Indication: HORMONE-REFRACTORY PROSTATE CANCER
     Dosage: 280 MG, 3X/DAY (2 CAPSULE OF 140 MG, THREE TIMES DAILY)
     Route: 048
     Dates: start: 20151218
  2. EMCYT [Suspect]
     Active Substance: ESTRAMUSTINE PHOSPHATE SODIUM
     Dosage: 560 MG, DAILY (140MG, TABS 1TAB PO AM 1 TAB PO NOON 2 PO EVENING)
     Route: 048
     Dates: start: 20151221
  3. PREDNISONE. [Concomitant]
     Active Substance: PREDNISONE
     Route: 048
  4. CEPHULAC [Concomitant]
     Active Substance: LACTULOSE
     Dosage: 20 G, UNK (1 TIME/ONCE)
     Route: 048
  5. LEVOPHED [Concomitant]
     Active Substance: NOREPINEPHRINE BITARTRATE
     Dosage: 16 MG, UNK (0.5MCG/MIN; ONCE)
     Route: 042
  6. TAMSULOSIN [Concomitant]
     Active Substance: TAMSULOSIN
     Route: 048
  7. SODIUM CHLORIDE. [Concomitant]
     Active Substance: SODIUM CHLORIDE
     Dosage: 1000 ML, UNK (1 TIME; 125 ML/HR)
     Route: 042
  8. VANCOMYCIN [Concomitant]
     Active Substance: VANCOMYCIN
     Dosage: 1 DF, 2X/DAY (1000MG= 1 VIAL ; 7 DAYS; Q12HR)
     Route: 042
  9. EMCYT [Suspect]
     Active Substance: ESTRAMUSTINE PHOSPHATE SODIUM
     Dosage: 700 MG, DAILY (140MG TABS, 2 IN AM, 1 NOON, 2 EVENING)
     Route: 048
     Dates: start: 20160104
  10. METOPROLOL. [Concomitant]
     Active Substance: METOPROLOL
     Indication: HYPERTENSION
     Dosage: 25 MG, 1X/DAY
     Route: 048
  11. OMEPRAZOLE. [Concomitant]
     Active Substance: OMEPRAZOLE
     Route: 048
  12. FLOMAX [Concomitant]
     Active Substance: TAMSULOSIN HYDROCHLORIDE
     Indication: PROSTATE CANCER
     Dosage: 0.4 MG, 1X/DAY
     Route: 048
  13. METOPROLOL TARTRATE. [Concomitant]
     Active Substance: METOPROLOL TARTRATE
     Route: 048
  14. ZOSYN [Concomitant]
     Active Substance: PIPERACILLIN SODIUM\TAZOBACTAM SODIUM
     Dosage: 1 DF, 4X/DAY (3.375GM=1VIAL 7 DAYS, Q6HR)
     Route: 042
     Dates: end: 20160328
  15. LEVOPHED [Concomitant]
     Active Substance: NOREPINEPHRINE BITARTRATE
     Dosage: UNK (234 ML/ 16MG; 3.75 ML/H)
     Route: 042
     Dates: end: 20160328
  16. LACTULOSE. [Concomitant]
     Active Substance: LACTULOSE
     Dosage: 30 ML, 4X/DAY (20GM= 30ML SOLUTION; Q6H)
     Route: 048
  17. EMCYT [Suspect]
     Active Substance: ESTRAMUSTINE PHOSPHATE SODIUM
     Dosage: 280 MG, 3X/DAY (140MG TABS, 2 PO TID)
     Route: 048
     Dates: start: 20160304, end: 20160328
  18. HCTZ [Concomitant]
     Active Substance: HYDROCHLOROTHIAZIDE
     Indication: HYPERTENSION
     Dosage: 25 MG, 1X/DAY
     Route: 048
  19. VANCOMYCIN [Concomitant]
     Active Substance: VANCOMYCIN
     Dosage: 1000 MG, UNK (1 TIME)
     Route: 042
  20. EMCYT [Suspect]
     Active Substance: ESTRAMUSTINE PHOSPHATE SODIUM
     Dosage: 140 MG, 3X/DAY
     Dates: start: 20151207
  21. FAMOTIDINE. [Concomitant]
     Active Substance: FAMOTIDINE
     Dosage: 2 ML, DAILY (20MG=2ML SOLN; 30 DAYS)
     Route: 042
     Dates: end: 20160328
  22. ZOSYN [Concomitant]
     Active Substance: PIPERACILLIN SODIUM\TAZOBACTAM SODIUM
     Dosage: 4.5 G, 1X/DAY
     Route: 040
  23. SODIUM CHLORIDE. [Concomitant]
     Active Substance: SODIUM CHLORIDE
     Dosage: 10 ML, DAILY
     Route: 042
     Dates: end: 20160328
  24. SODIUM CHLORIDE. [Concomitant]
     Active Substance: SODIUM CHLORIDE
     Dosage: 100 ML, 4X/DAY
     Route: 042
     Dates: end: 20160328
  25. KLOR-CON M20 [Concomitant]
     Active Substance: POTASSIUM CHLORIDE
     Dosage: 20 MEQ, AS NEEDED/(1 TBTQ 30 DAYS)
     Route: 048
  26. CLOPIDOGREL [Concomitant]
     Active Substance: CLOPIDOGREL BISULFATE
     Route: 048
  27. SODIUM CHLORIDE. [Concomitant]
     Active Substance: SODIUM CHLORIDE
     Dosage: 1000 ML, UNK (1 TIME; 999 ML/HR)
     Route: 042
     Dates: end: 20160328

REACTIONS (8)
  - Disease progression [Fatal]
  - Muscular weakness [Unknown]
  - Pleural effusion [Fatal]
  - Hormone-refractory prostate cancer [Fatal]
  - Sepsis [Fatal]
  - Back pain [Unknown]
  - Hypoxic-ischaemic encephalopathy [Fatal]
  - Pulmonary oedema [Unknown]

NARRATIVE: CASE EVENT DATE: 20160328
